FAERS Safety Report 7512822-9 (Version None)
Quarter: 2011Q2

REPORT INFORMATION
  Report Type: 
  Country: None (occurrence: None)
  Receive Date: 20110520
  Receipt Date: 20110511
  Transmission Date: 20111010
  Serious: Yes (Death)
  Sender: FDA-Public Use
  Company Number: JPI-P-014814

PATIENT
  Age: 64 Year
  Sex: Female

DRUGS (5)
  1. XYREM (500 MILLIGRAM/MILLILITERS SOLUTION) (SODOUM OXYBATE) [Suspect]
     Indication: INSOMNIA
     Dosage: SEE IMAGE
     Route: 048
     Dates: start: 20070510, end: 20070703
  2. XYREM (500 MILLIGRAM/MILLILITERS SOLUTION) (SODOUM OXYBATE) [Suspect]
     Indication: INSOMNIA
     Dosage: SEE IMAGE
     Route: 048
     Dates: start: 20051006, end: 20060301
  3. XYREM (500 MILLIGRAM/MILLILITERS SOLUTION) (SODOUM OXYBATE) [Suspect]
     Indication: INSOMNIA
     Dosage: SEE IMAGE
     Route: 048
     Dates: start: 20050729, end: 20051001
  4. XYREM (500 MILLIGRAM/MILLILITERS SOLUTION) (SODOUM OXYBATE) [Suspect]
     Indication: INSOMNIA
     Dosage: SEE IMAGE
     Route: 048
     Dates: start: 20070110, end: 20070401
  5. XYREM (500 MILLIGRAM/MILLILITERS SOLUTION) (SODOUM OXYBATE) [Suspect]
     Indication: INSOMNIA
     Dosage: SEE IMAGE
     Route: 048
     Dates: start: 20061009, end: 20070101

REACTIONS (1)
  - DEATH [None]
